FAERS Safety Report 18859984 (Version 1)
Quarter: 2021Q1

REPORT INFORMATION
  Report Type: Spontaneous
  Country: US (occurrence: US)
  Receive Date: 20210208
  Receipt Date: 20210208
  Transmission Date: 20210420
  Serious: Yes (Hospitalization)
  Sender: FDA-Public Use
  Company Number: None

PATIENT
  Age: 57 Year
  Sex: Female

DRUGS (15)
  1. AMBEIN [Concomitant]
  2. XARELTO [Concomitant]
     Active Substance: RIVAROXABAN
  3. DULOXETINE. [Concomitant]
     Active Substance: DULOXETINE
  4. LANTUS [Concomitant]
     Active Substance: INSULIN GLARGINE
  5. PREVACID [Concomitant]
     Active Substance: LANSOPRAZOLE
  6. NOVOLOG [Concomitant]
     Active Substance: INSULIN ASPART
  7. OMEPRAZOLE. [Concomitant]
     Active Substance: OMEPRAZOLE
  8. ZOLPIDEM [Concomitant]
     Active Substance: ZOLPIDEM TARTRATE
  9. NEURONTIN [Concomitant]
     Active Substance: GABAPENTIN
  10. GABAPENTIN. [Concomitant]
     Active Substance: GABAPENTIN
  11. INSULIN [Concomitant]
     Active Substance: INSULIN NOS
  12. LUMIGAN [Concomitant]
     Active Substance: BIMATOPROST
  13. IMATINIB. [Suspect]
     Active Substance: IMATINIB MESYLATE
     Indication: CHRONIC MYELOID LEUKAEMIA
     Route: 048
     Dates: start: 20180717
  14. COSOPT [Concomitant]
     Active Substance: DORZOLAMIDE HYDROCHLORIDE\TIMOLOL MALEATE
  15. TYLENOL [Concomitant]
     Active Substance: ACETAMINOPHEN

REACTIONS (2)
  - Intentional dose omission [None]
  - Large intestinal haemorrhage [None]

NARRATIVE: CASE EVENT DATE: 20210129
